FAERS Safety Report 8216605-6 (Version None)
Quarter: 2012Q1

REPORT INFORMATION
  Report Type: 
  Country: None (occurrence: None)
  Receive Date: 20120316
  Receipt Date: 20120302
  Transmission Date: 20120608
  Serious: Yes (Other)
  Sender: FDA-Public Use
  Company Number: CHPA2012US004491

PATIENT
  Age: 29 Year
  Sex: Male

DRUGS (1)
  1. NODOZ [Suspect]
     Indication: SOMNOLENCE
     Dosage: 1 DF, ONCE/SINGLE
     Route: 048
     Dates: start: 20120302, end: 20120302

REACTIONS (2)
  - HEART RATE IRREGULAR [None]
  - HEART RATE INCREASED [None]
